FAERS Safety Report 7480869-7 (Version None)
Quarter: 2011Q2

REPORT INFORMATION
  Report Type: 
  Country: None (occurrence: None)
  Receive Date: 20110506
  Receipt Date: 20110421
  Transmission Date: 20111010
  Serious: Yes (Hospitalization)
  Sender: FDA-Public Use
  Company Number: AUR-APL-2011-01440

PATIENT
  Age: 14 Year
  Sex: Female

DRUGS (2)
  1. INTRAFER (FERROUS MALTOSE) [Concomitant]
  2. ATENOLOL [Suspect]
     Indication: TACHYCARDIA
     Dosage: 25MG - DAILY
     Dates: start: 20101201, end: 20110305

REACTIONS (2)
  - PALPITATIONS [None]
  - EXTRASYSTOLES [None]
